FAERS Safety Report 10182992 (Version 1)
Quarter: 2014Q2

REPORT INFORMATION
  Report Type: Spontaneous
  Country: US (occurrence: US)
  Receive Date: 20140520
  Receipt Date: 20140520
  Transmission Date: 20141212
  Serious: No
  Sender: FDA-Public Use
  Company Number: US-PFIZER INC-2014137951

PATIENT
  Age: 68 Year
  Sex: Female
  Weight: 56.7 kg

DRUGS (4)
  1. SPIRONOLACTONE [Suspect]
     Indication: ALOPECIA
     Dosage: 150 MG
  2. SPIRONOLACTONE [Suspect]
     Dosage: 100 MG, 2X/DAY
     Dates: start: 201312
  3. TRAMADOL [Concomitant]
     Dosage: 100 MG, 4X/DAY
  4. IRON [Concomitant]
     Indication: BLOOD IRON DECREASED
     Dosage: UNK

REACTIONS (2)
  - Drug ineffective for unapproved indication [Unknown]
  - Expired product administered [Unknown]
